FAERS Safety Report 14173618 (Version 3)
Quarter: 2018Q3

REPORT INFORMATION
  Report Type: Spontaneous
  Country: US (occurrence: US)
  Receive Date: 20171109
  Receipt Date: 20180906
  Transmission Date: 20181010
  Serious: No
  Sender: FDA-Public Use
  Company Number: US-PFIZER INC-2017482016

PATIENT
  Age: 75 Year
  Sex: Female

DRUGS (1)
  1. XELJANZ XR [Suspect]
     Active Substance: TOFACITINIB CITRATE
     Indication: RHEUMATOID ARTHRITIS
     Dosage: 11 MG, 1X/DAY
     Dates: start: 201708

REACTIONS (1)
  - Nasopharyngitis [Unknown]

NARRATIVE: CASE EVENT DATE: 2017
